FAERS Safety Report 20219707 (Version 1)
Quarter: 2021Q4

REPORT INFORMATION
  Report Type: Spontaneous
  Country: FR (occurrence: FR)
  Receive Date: 20211222
  Receipt Date: 20211222
  Transmission Date: 20220303
  Serious: Yes (Other)
  Sender: FDA-Public Use
  Company Number: None

PATIENT
  Age: 79 Year
  Sex: Female

DRUGS (2)
  1. TERIPARATIDE [Suspect]
     Active Substance: TERIPARATIDE
     Indication: Osteoporosis
     Dosage: 1 DOSAGE FORM, UNKNOWN
     Route: 058
     Dates: start: 20210922
  2. TERIPARATIDE [Suspect]
     Active Substance: TERIPARATIDE
     Dosage: 1 DOSAGE FORM, OTHER, TREATMENT 21 DAYS IN TOTAL
     Route: 058
     Dates: end: 202110

REACTIONS (1)
  - Musculoskeletal pain [Recovered/Resolved]

NARRATIVE: CASE EVENT DATE: 20210922
